FAERS Safety Report 19656785 (Version 2)
Quarter: 2022Q1

REPORT INFORMATION
  Report Type: Spontaneous
  Country: DK (occurrence: None)
  Receive Date: 20210804
  Receipt Date: 20220211
  Transmission Date: 20220424
  Serious: Yes (Death, Life-Threatening, Hospitalization, Other)
  Sender: FDA-Public Use
  Company Number: DK-ACCORD-232214

PATIENT
  Age: 68 Year
  Sex: Female
  Weight: 75.1 kg

DRUGS (51)
  1. OXALIPLATIN [Suspect]
     Active Substance: OXALIPLATIN
     Indication: Diffuse large B-cell lymphoma stage IV
     Dosage: 182 MILLIGRAM, SINGLE
     Route: 042
     Dates: start: 20210429, end: 20210429
  2. OXALIPLATIN [Suspect]
     Active Substance: OXALIPLATIN
     Dosage: 182 MILLIGRAM, SINGLE
     Route: 042
     Dates: start: 20210531, end: 20210531
  3. OXALIPLATIN [Suspect]
     Active Substance: OXALIPLATIN
     Dosage: 187 MILLIGRAM, SINGLE
     Route: 042
     Dates: start: 20210312, end: 20210312
  4. OXALIPLATIN [Suspect]
     Active Substance: OXALIPLATIN
     Dosage: 181 MILLIGRAM, SINGLE
     Route: 042
     Dates: start: 20210326, end: 20210326
  5. OXALIPLATIN [Suspect]
     Active Substance: OXALIPLATIN
     Dosage: 187 MILLIGRAM, SINGLE?NOT APPLICABLE.
     Route: 042
     Dates: start: 20210202, end: 20210202
  6. OXALIPLATIN [Suspect]
     Active Substance: OXALIPLATIN
     Dosage: 183 MILLIGRAM, SINGLE
     Route: 042
     Dates: start: 20210223, end: 20210223
  7. OXALIPLATIN [Suspect]
     Active Substance: OXALIPLATIN
     Dosage: 182 MILLIGRAM, SINGLE
     Route: 042
     Dates: start: 20210517, end: 20210517
  8. OXALIPLATIN [Suspect]
     Active Substance: OXALIPLATIN
     Dosage: 181 MILLIGRAM, SINGLE
     Route: 042
     Dates: start: 20210413, end: 20210413
  9. OXALIPLATIN [Suspect]
     Active Substance: OXALIPLATIN
     Dosage: 1Q2W
     Route: 042
     Dates: start: 20210202, end: 20210202
  10. GEMCITABINE HYDROCHLORIDE [Suspect]
     Active Substance: GEMCITABINE HYDROCHLORIDE
     Indication: Diffuse large B-cell lymphoma stage IV
     Dosage: 1870 MILLIGRAM,SINGLE?NOT APPLICABLE.
     Route: 042
     Dates: start: 20210202, end: 20210202
  11. GEMCITABINE HYDROCHLORIDE [Suspect]
     Active Substance: GEMCITABINE HYDROCHLORIDE
     Dosage: 1820 MILLIGRAM, SINGLE
     Route: 042
     Dates: start: 20210429, end: 20210429
  12. GEMCITABINE HYDROCHLORIDE [Suspect]
     Active Substance: GEMCITABINE HYDROCHLORIDE
     Dosage: 1830 MILLIGRAM, SINGLE
     Route: 042
     Dates: start: 20210223, end: 20210223
  13. GEMCITABINE HYDROCHLORIDE [Suspect]
     Active Substance: GEMCITABINE HYDROCHLORIDE
     Dosage: 1810 MILLIGRAM, SINGLE
     Route: 042
     Dates: start: 20210413, end: 20210413
  14. GEMCITABINE HYDROCHLORIDE [Suspect]
     Active Substance: GEMCITABINE HYDROCHLORIDE
     Dosage: 1820 MILLIGRAM, SINGLE
     Route: 042
     Dates: start: 20210531, end: 20210531
  15. GEMCITABINE HYDROCHLORIDE [Suspect]
     Active Substance: GEMCITABINE HYDROCHLORIDE
     Dosage: 1820 MILLIGRAM, SINGLE
     Route: 042
     Dates: start: 20210312, end: 20210312
  16. GEMCITABINE HYDROCHLORIDE [Suspect]
     Active Substance: GEMCITABINE HYDROCHLORIDE
     Dosage: 1810 MILLIGRAM, SINGLE
     Route: 042
     Dates: start: 20210326, end: 20210326
  17. GEMCITABINE HYDROCHLORIDE [Suspect]
     Active Substance: GEMCITABINE HYDROCHLORIDE
     Dosage: 1820 MILLIGRAM, SINGLE
     Route: 042
     Dates: start: 20210517, end: 20210517
  18. GEMCITABINE HYDROCHLORIDE [Suspect]
     Active Substance: GEMCITABINE HYDROCHLORIDE
     Dosage: 1Q2W
     Route: 042
     Dates: start: 20210202, end: 20210531
  19. EPCORITAMAB [Suspect]
     Active Substance: EPCORITAMAB
     Indication: Product used for unknown indication
     Dosage: FULL DOSE: 48 MILLIGRAM, 1Q2W
     Route: 058
     Dates: start: 20210517, end: 20210531
  20. EPCORITAMAB [Suspect]
     Active Substance: EPCORITAMAB
     Dosage: FULL DOSE: 48 MILLIGRAM, WEEKLY
     Route: 058
     Dates: start: 20210223, end: 20210507
  21. EPCORITAMAB [Suspect]
     Active Substance: EPCORITAMAB
     Dosage: PRIMIMG DOSE: 0.16 MILLIGRAM, SINGLE?DRUG INTERRUPTED
     Route: 058
     Dates: start: 20210202, end: 20210202
  22. EPCORITAMAB [Suspect]
     Active Substance: EPCORITAMAB
     Dosage: INTERMEDIATE DOSE: 0.8 MILLIGRAM, SINGLE
     Route: 058
     Dates: start: 20210216, end: 20210216
  23. PANTOPRAZOLE [Concomitant]
     Active Substance: PANTOPRAZOLE
     Indication: Product used for unknown indication
     Route: 065
     Dates: start: 20200511, end: 20210704
  24. ONDANSETRON [Concomitant]
     Active Substance: ONDANSETRON
     Indication: Product used for unknown indication
     Route: 065
     Dates: start: 20210304
  25. ONDANSETRON [Concomitant]
     Active Substance: ONDANSETRON
     Route: 065
     Dates: start: 20210517, end: 20210517
  26. ONDANSETRON [Concomitant]
     Active Substance: ONDANSETRON
     Route: 065
     Dates: start: 20210517, end: 20210517
  27. PREDNISOLONE [Concomitant]
     Active Substance: PREDNISOLONE
     Indication: Product used for unknown indication
     Route: 065
     Dates: start: 20210514, end: 20210531
  28. ACYCLOVIR [Concomitant]
     Active Substance: ACYCLOVIR
     Indication: Product used for unknown indication
     Route: 065
     Dates: start: 20210215, end: 20210624
  29. ALLOPURINOL [Concomitant]
     Active Substance: ALLOPURINOL
     Indication: Product used for unknown indication
     Route: 065
     Dates: start: 20210517, end: 20210517
  30. BISACODYL [Concomitant]
     Active Substance: BISACODYL
     Indication: Product used for unknown indication
     Route: 065
     Dates: start: 20200916
  31. CETIRIZINE HYDROCHLORIDE [Concomitant]
     Active Substance: CETIRIZINE HYDROCHLORIDE
     Indication: Product used for unknown indication
     Route: 065
     Dates: start: 20210514, end: 20210531
  32. ZOPICLONE [Concomitant]
     Active Substance: ZOPICLONE
     Indication: Product used for unknown indication
     Route: 065
     Dates: start: 20200318, end: 20210704
  33. POTASSIUM CHLORIDE [Concomitant]
     Active Substance: POTASSIUM CHLORIDE
     Indication: Product used for unknown indication
     Route: 065
     Dates: start: 20210608, end: 20210613
  34. CHOLECALCIFEROL [Concomitant]
     Active Substance: CHOLECALCIFEROL
     Indication: Product used for unknown indication
     Route: 065
     Dates: start: 20200408, end: 20210704
  35. CALCIUM CARBONATE [Concomitant]
     Active Substance: CALCIUM CARBONATE
     Indication: Product used for unknown indication
     Route: 065
     Dates: start: 20200402, end: 20210702
  36. ACETAMINOPHEN [Concomitant]
     Active Substance: ACETAMINOPHEN
     Indication: Product used for unknown indication
     Route: 065
     Dates: start: 20210514, end: 20210531
  37. ACETAMINOPHEN [Concomitant]
     Active Substance: ACETAMINOPHEN
     Route: 065
     Dates: start: 20210514, end: 20210624
  38. DALTEPARIN [Concomitant]
     Active Substance: DALTEPARIN
     Indication: Product used for unknown indication
     Route: 065
     Dates: start: 20210326, end: 20210525
  39. PEGFILGRASTIM [Concomitant]
     Active Substance: PEGFILGRASTIM
     Indication: Product used for unknown indication
     Route: 065
     Dates: start: 20210520, end: 20210520
  40. PEGFILGRASTIM [Concomitant]
     Active Substance: PEGFILGRASTIM
     Route: 065
     Dates: start: 20210326, end: 20210525
  41. ATENOLOL [Concomitant]
     Active Substance: ATENOLOL
     Indication: Product used for unknown indication
     Route: 065
     Dates: start: 20210616, end: 20210704
  42. DIGOXIN [Concomitant]
     Active Substance: DIGOXIN
     Indication: Product used for unknown indication
     Route: 065
     Dates: start: 20210705, end: 20210706
  43. TOCILIZUMAB [Concomitant]
     Active Substance: TOCILIZUMAB
     Indication: Product used for unknown indication
     Route: 065
     Dates: start: 20210707, end: 20210707
  44. CALCIUM POLYSTYRENE SULFONATE [Concomitant]
     Active Substance: CALCIUM POLYSTYRENE SULFONATE
     Indication: Product used for unknown indication
     Route: 065
     Dates: start: 20210701, end: 20210704
  45. POTASSIUM PHOSPHATE, DIBASIC [Concomitant]
     Active Substance: POTASSIUM PHOSPHATE, DIBASIC
     Indication: Product used for unknown indication
     Route: 065
     Dates: start: 20210611, end: 20210611
  46. FIBRINOGEN HUMAN [Concomitant]
     Active Substance: FIBRINOGEN HUMAN
     Indication: Product used for unknown indication
     Route: 065
     Dates: start: 20210707, end: 20210707
  47. MAGNESIUM HYDROXIDE [Concomitant]
     Active Substance: MAGNESIUM HYDROXIDE
     Indication: Product used for unknown indication
     Route: 065
     Dates: start: 20210610, end: 20210704
  48. AMIODARONE [Concomitant]
     Active Substance: AMIODARONE
     Indication: Product used for unknown indication
     Route: 065
     Dates: start: 20210706, end: 20210707
  49. FILGRASTIM [Concomitant]
     Active Substance: FILGRASTIM
     Indication: Product used for unknown indication
     Route: 065
     Dates: start: 20210612, end: 20210706
  50. FUROSEMIDE [Concomitant]
     Active Substance: FUROSEMIDE
     Indication: Product used for unknown indication
     Route: 065
     Dates: start: 20210613, end: 20210704
  51. METHYLPREDNISOLONE SODIUM SUCCINATE [Concomitant]
     Active Substance: METHYLPREDNISOLONE SODIUM SUCCINATE
     Indication: Product used for unknown indication
     Route: 065
     Dates: start: 20210319

REACTIONS (8)
  - Hepatitis acute [Fatal]
  - Multiple organ dysfunction syndrome [Fatal]
  - Ascites [Not Recovered/Not Resolved]
  - Cytokine release syndrome [Recovered/Resolved]
  - Capillary leak syndrome [Not Recovered/Not Resolved]
  - Pleural effusion [Not Recovered/Not Resolved]
  - Myelodysplastic syndrome [Not Recovered/Not Resolved]
  - Off label use [Unknown]

NARRATIVE: CASE EVENT DATE: 20210606
